FAERS Safety Report 6278474-3 (Version None)
Quarter: 2009Q3

REPORT INFORMATION
  Report Type: 
  Country: None (occurrence: None)
  Receive Date: 20090721
  Receipt Date: 20090708
  Transmission Date: 20100115
  Serious: Yes (Hospitalization)
  Sender: FDA-Public Use
  Company Number: 1000007504

PATIENT
  Age: 89 Year
  Sex: Female

DRUGS (3)
  1. ESCITALOPRAM [Suspect]
     Dosage: 10 MG (10 MG, 1 IN 1 D), ORAL
     Route: 048
  2. ASPIRIN [Suspect]
     Dosage: 100 MG (100 MG, 1 IN 1 D), ORAL
     Route: 048
     Dates: end: 20090122
  3. ENATEC [Concomitant]

REACTIONS (3)
  - FALL [None]
  - HAEMORRHAGIC STROKE [None]
  - HEAD INJURY [None]
